FAERS Safety Report 9292246 (Version 1)
Quarter: 2012Q4

REPORT INFORMATION
  Report Type: Spontaneous
  Country: US (occurrence: None)
  Receive Date: 20121127
  Receipt Date: 20121127
  Transmission Date: 20130627
  Serious: Yes (Hospitalization, Other)
  Sender: FDA-Public Use
  Company Number: USA/USA/12/0026240

PATIENT
  Sex: Male

DRUGS (1)
  1. OLANZAPINE [Suspect]
     Indication: PRODUCT USED FOR UNKNOWN INDICATION
     Dates: end: 20121012

REACTIONS (9)
  - Thirst [None]
  - Mood altered [None]
  - Depression [None]
  - Withdrawal syndrome [None]
  - Tremor [None]
  - Muscle rigidity [None]
  - Hyperhidrosis [None]
  - Nausea [None]
  - Dyspnoea [None]
